FAERS Safety Report 25804797 (Version 3)
Quarter: 2025Q4

REPORT INFORMATION
  Report Type: Report from Study
  Country: US (occurrence: US)
  Receive Date: 20250915
  Receipt Date: 20251013
  Transmission Date: 20260117
  Serious: Yes (Other)
  Sender: ABBVIE
  Company Number: US-ABBVIE-6456617

PATIENT
  Sex: Female

DRUGS (1)
  1. SKYRIZI [Suspect]
     Active Substance: RISANKIZUMAB-RZAA
     Indication: Colitis ulcerative
     Route: 058
     Dates: start: 202411

REACTIONS (12)
  - Arterial occlusive disease [Not Recovered/Not Resolved]
  - Agitation [Unknown]
  - Anxiety [Recovering/Resolving]
  - Mood altered [Recovering/Resolving]
  - Blood calcium increased [Not Recovered/Not Resolved]
  - Illness [Unknown]
  - Asthenia [Not Recovered/Not Resolved]
  - Fatigue [Unknown]
  - Depression [Unknown]
  - Abdominal discomfort [Unknown]
  - Colitis ulcerative [Not Recovered/Not Resolved]
  - Computerised tomogram heart abnormal [Unknown]
